FAERS Safety Report 8852405 (Version 1)
Quarter: 2012Q4

REPORT INFORMATION
  Report Type: Report from Study
  Country: PL (occurrence: PL)
  Receive Date: 20121022
  Receipt Date: 20121022
  Transmission Date: 20130627
  Serious: Yes (Hospitalization)
  Sender: FDA-Public Use
  Company Number: PL-ROCHE-1145887

PATIENT
  Age: 41 Year
  Sex: Female

DRUGS (5)
  1. RITUXIMAB [Suspect]
     Indication: MALIGNANT LYMPHOID NEOPLASM
     Route: 042
     Dates: start: 20110307, end: 20110427
  2. VINCRISTIN [Suspect]
     Indication: MALIGNANT LYMPHOID NEOPLASM
     Route: 042
     Dates: start: 20110307, end: 20110427
  3. DOXORUBICIN [Suspect]
     Indication: MALIGNANT LYMPHOID NEOPLASM
     Route: 042
     Dates: start: 20110307, end: 20110427
  4. CYCLOPHOSPHAMID [Suspect]
     Indication: MALIGNANT LYMPHOID NEOPLASM
     Route: 042
     Dates: start: 20110307, end: 20110427
  5. PREDNISOLON [Suspect]
     Indication: MALIGNANT LYMPHOID NEOPLASM
     Route: 048
     Dates: start: 20110307, end: 20120427

REACTIONS (3)
  - Pyrexia [Unknown]
  - Diarrhoea haemorrhagic [Unknown]
  - Urinary tract infection [Unknown]
